FAERS Safety Report 6964927-9 (Version None)
Quarter: 2010Q3

REPORT INFORMATION
  Report Type: 
  Country: None (occurrence: None)
  Receive Date: 20100903
  Receipt Date: 20100825
  Transmission Date: 20110219
  Serious: Yes (Other)
  Sender: FDA-Public Use
  Company Number: GB-ASTRAZENECA-2010SE40178

PATIENT
  Age: 75 Year
  Sex: Female
  Weight: 70 kg

DRUGS (4)
  1. ROSUVASTATIN [Suspect]
     Route: 048
  2. BENDROFLUAZIDE [Concomitant]
     Route: 048
  3. PERINDOPRIL [Concomitant]
  4. THROXINE [Concomitant]

REACTIONS (1)
  - DEAFNESS TRANSITORY [None]
